FAERS Safety Report 10057152 (Version 1)
Quarter: 2014Q2

REPORT INFORMATION
  Report Type: Report from Study
  Country: US (occurrence: US)
  Receive Date: 20140403
  Receipt Date: 20140403
  Transmission Date: 20141212
  Serious: Yes (Other)
  Sender: FDA-Public Use
  Company Number: US-TEVA-472568USA

PATIENT
  Sex: Female

DRUGS (2)
  1. CLOZAPINE [Suspect]
     Indication: PARKINSON^S DISEASE
     Route: 048
  2. CLOZAPINE [Suspect]
     Indication: DEMENTIA

REACTIONS (1)
  - Parkinson^s disease [Not Recovered/Not Resolved]
